FAERS Safety Report 4517680-2 (Version None)
Quarter: 2004Q4

REPORT INFORMATION
  Report Type: 
  Country: None (occurrence: None)
  Receive Date: 20041203
  Receipt Date: 20010627
  Transmission Date: 20050328
  Serious: Yes (Hospitalization)
  Sender: FDA-Public Use
  Company Number: 200114751US

PATIENT
  Sex: Female

DRUGS (12)
  1. LANTUS [Suspect]
     Indication: DIABETES MELLITUS INSULIN-DEPENDENT
     Dosage: DOSE UNIT: UNITS
     Dates: start: 20010601
  2. HUMALOG [Concomitant]
     Dosage: DOSE: 10-15; DOSE UNIT: UNITS
  3. HUMULIN N [Concomitant]
     Dosage: DOSE: NOT PROVIDED
  4. HEPARIN [Concomitant]
     Dosage: DOSE: NOT PROVIDED
     Dates: start: 20020316
  5. HUMULIN R [Concomitant]
     Dosage: DOSE: NOT PROVIDED
     Dates: start: 20020316
  6. POTASSIUM CHLORIDE [Concomitant]
     Dosage: DOSE: NOT PROVIDED
     Dates: start: 20020316
  7. POTASSIUM PHOSPHATES [Concomitant]
     Dosage: DOSE: NOT PROVIDED
     Dates: start: 20020316
  8. SODIUM CHLORIDE [Concomitant]
     Dosage: DOSE: NOT PROVIDED
     Dates: start: 20020316
  9. FLUCONAZOLE [Concomitant]
     Dosage: DOSE: NOT PROVIDED
     Dates: start: 20020317
  10. MAGNESIUM SULFATE [Concomitant]
     Dosage: DOSE: NOT PROVIDED
     Dates: start: 20020317
  11. RANITIDINE [Concomitant]
     Dosage: DOSE: NOT PROVIDED
     Dates: start: 20020317
  12. PEPCID [Concomitant]
     Dosage: DOSE: NOT PROVIDED

REACTIONS (21)
  - ABDOMINAL PAIN [None]
  - ACIDOSIS HYPERCHLORAEMIC [None]
  - ALCOHOL USE [None]
  - BLOOD ALKALINE PHOSPHATASE INCREASED [None]
  - BLOOD LACTATE DEHYDROGENASE INCREASED [None]
  - BLOOD POTASSIUM INCREASED [None]
  - BLOOD SODIUM DECREASED [None]
  - BLOOD URIC ACID INCREASED [None]
  - COMA [None]
  - DIABETIC KETOACIDOSIS [None]
  - DIZZINESS [None]
  - FEELING ABNORMAL [None]
  - HYPOPHOSPHATAEMIA [None]
  - KUSSMAUL RESPIRATION [None]
  - MALAISE [None]
  - NAUSEA [None]
  - SINUS TACHYCARDIA [None]
  - URETERITIS [None]
  - VAGINITIS [None]
  - VOMITING [None]
  - WHITE BLOOD CELL COUNT INCREASED [None]
